FAERS Safety Report 24960341 (Version 5)
Quarter: 2025Q2

REPORT INFORMATION
  Report Type: Spontaneous
  Country: GB (occurrence: GB)
  Receive Date: 20250212
  Receipt Date: 20250612
  Transmission Date: 20250716
  Serious: Yes (Hospitalization, Other)
  Sender: MYLAN
  Company Number: GB-MYLANLABS-2025M1002504

PATIENT
  Age: 44 Year
  Sex: Female

DRUGS (16)
  1. CLOZARIL [Suspect]
     Active Substance: CLOZAPINE
     Indication: Schizophrenia
     Route: 048
     Dates: start: 20010701, end: 20250116
  2. CLOZARIL [Suspect]
     Active Substance: CLOZAPINE
     Dates: start: 20010701, end: 20250116
  3. CLOZARIL [Suspect]
     Active Substance: CLOZAPINE
     Dates: start: 20010701, end: 20250116
  4. CLOZARIL [Suspect]
     Active Substance: CLOZAPINE
     Route: 048
     Dates: start: 20010701, end: 20250116
  5. CLOZARIL [Suspect]
     Active Substance: CLOZAPINE
     Route: 048
  6. CLOZARIL [Suspect]
     Active Substance: CLOZAPINE
  7. CLOZARIL [Suspect]
     Active Substance: CLOZAPINE
  8. CLOZARIL [Suspect]
     Active Substance: CLOZAPINE
     Route: 048
  9. HALOPERIDOL [Suspect]
     Active Substance: HALOPERIDOL
     Indication: Product used for unknown indication
  10. HALOPERIDOL [Suspect]
     Active Substance: HALOPERIDOL
     Route: 065
  11. HALOPERIDOL [Suspect]
     Active Substance: HALOPERIDOL
     Route: 065
  12. HALOPERIDOL [Suspect]
     Active Substance: HALOPERIDOL
  13. LITHIUM [Suspect]
     Active Substance: LITHIUM
     Indication: Product used for unknown indication
  14. LITHIUM [Suspect]
     Active Substance: LITHIUM
     Route: 065
  15. LITHIUM [Suspect]
     Active Substance: LITHIUM
     Route: 065
  16. LITHIUM [Suspect]
     Active Substance: LITHIUM

REACTIONS (9)
  - Psychotic disorder [Unknown]
  - Blood creatine phosphokinase increased [Unknown]
  - Neuroleptic malignant syndrome [Unknown]
  - Neutrophilia [Unknown]
  - White blood cell count decreased [Recovered/Resolved]
  - Neutrophil count decreased [Recovered/Resolved]
  - Eosinophil count decreased [Not Recovered/Not Resolved]
  - General physical condition abnormal [Unknown]
  - Leukocytosis [Unknown]

NARRATIVE: CASE EVENT DATE: 20241209
